FAERS Safety Report 5925816-1 (Version None)
Quarter: 2008Q4

REPORT INFORMATION
  Report Type: 
  Country: None (occurrence: None)
  Receive Date: 20081021
  Receipt Date: 20081009
  Transmission Date: 20090506
  Serious: Yes (Hospitalization, Other)
  Sender: FDA-Public Use
  Company Number: CA-PFIZER INC-2007073450

PATIENT
  Sex: Male
  Weight: 104.3 kg

DRUGS (3)
  1. ZOLOFT [Suspect]
     Indication: DEPRESSION
     Route: 048
     Dates: start: 20040101, end: 20041101
  2. ZOLOFT [Suspect]
     Indication: HERPES VIRUS INFECTION
  3. RISPERDAL [Concomitant]

REACTIONS (18)
  - AGITATION [None]
  - ANXIETY [None]
  - BLOOD CHOLESTEROL ABNORMAL [None]
  - DECREASED ACTIVITY [None]
  - DIZZINESS [None]
  - DRUG INEFFECTIVE [None]
  - FEELING ABNORMAL [None]
  - MEDICATION ERROR [None]
  - MENTAL DISORDER [None]
  - NERVOUSNESS [None]
  - PAIN [None]
  - PARAESTHESIA [None]
  - PHOTOPHOBIA [None]
  - PSYCHOMOTOR HYPERACTIVITY [None]
  - SENSORY DISTURBANCE [None]
  - SEXUAL DYSFUNCTION [None]
  - STRESS [None]
  - WITHDRAWAL SYNDROME [None]
